FAERS Safety Report 4605729-8 (Version None)
Quarter: 2005Q1

REPORT INFORMATION
  Report Type: 
  Country: None (occurrence: None)
  Receive Date: 20050311
  Receipt Date: 20050311
  Transmission Date: 20050727
  Serious: Yes (Other)
  Sender: FDA-Public Use
  Company Number: None

PATIENT
  Age: 3 Month
  Sex: Female
  Weight: 5.4432 kg

DRUGS (2)
  1. ZANTAC [Suspect]
     Indication: GASTROOESOPHAGEAL REFLUX DISEASE
     Dosage: .06 ML AS PERSCRIBED ORAL
     Route: 048
     Dates: start: 20040928, end: 20041011
  2. ZYRTEC [Suspect]

REACTIONS (1)
  - MEDICATION ERROR [None]
